FAERS Safety Report 10339400 (Version 1)
Quarter: 2014Q3

REPORT INFORMATION
  Report Type: Spontaneous
  Country: US (occurrence: None)
  Receive Date: 20140723
  Receipt Date: 20140723
  Transmission Date: 20150326
  Serious: Yes (Other)
  Sender: FDA-Public Use
  Company Number: None

PATIENT
  Age: 44 Year
  Sex: Female

DRUGS (1)
  1. H.P. ACTHAR [Suspect]
     Active Substance: CORTICOTROPIN
     Indication: SYSTEMIC LUPUS ERYTHEMATOSUS
     Dosage: INJECTABLE, DAILY, SUBCUTANEOUS 057
     Route: 058
     Dates: start: 20140620

REACTIONS (2)
  - Joint swelling [None]
  - Cushingoid [None]

NARRATIVE: CASE EVENT DATE: 20140721
